FAERS Safety Report 17757274 (Version 2)
Quarter: 2020Q2

REPORT INFORMATION
  Report Type: Spontaneous
  Country: US (occurrence: US)
  Receive Date: 20200507
  Receipt Date: 20200519
  Transmission Date: 20200714
  Serious: No
  Sender: FDA-Public Use
  Company Number: US-PHARMING-PHAUS2020000174

PATIENT

DRUGS (1)
  1. RUCONEST [Suspect]
     Active Substance: HUMAN C1-ESTERASE INHIBITOR
     Indication: HEREDITARY ANGIOEDEMA
     Dosage: 3000 IU INTERNATIONAL UNIT(S), TWICE WEEKLY
     Route: 042
     Dates: start: 20181030

REACTIONS (5)
  - Intentional product use issue [Unknown]
  - Impaired healing [Unknown]
  - Device issue [Unknown]
  - Product dose omission [Unknown]
  - Wound [Unknown]
